FAERS Safety Report 6609169-1 (Version None)
Quarter: 2010Q1

REPORT INFORMATION
  Report Type: 
  Country: None (occurrence: None)
  Receive Date: 20100224
  Receipt Date: 20100219
  Transmission Date: 20100710
  Serious: Yes (Death)
  Sender: FDA-Public Use
  Company Number: ALL1-2010-00867

PATIENT
  Age: 71 Year
  Sex: Male

DRUGS (1)
  1. FOSRENOL [Suspect]
     Indication: HYPERPHOSPHATAEMIA
     Dosage: UNK MG, UNKNOWN, ORAL
     Route: 048

REACTIONS (1)
  - OESOPHAGEAL VARICES HAEMORRHAGE [None]
